FAERS Safety Report 25794140 (Version 3)
Quarter: 2025Q4

REPORT INFORMATION
  Report Type: Spontaneous
  Country: US (occurrence: US)
  Receive Date: 20250912
  Receipt Date: 20251117
  Transmission Date: 20260117
  Serious: No
  Sender: ROCHE
  Company Number: US-ROCHE-10000383128

PATIENT
  Sex: Female

DRUGS (2)
  1. XOLAIR PFS [Suspect]
     Active Substance: OMALIZUMAB
     Indication: Idiopathic urticaria
     Route: 058
     Dates: start: 201806
  2. XOLAIR PFS [Suspect]
     Active Substance: OMALIZUMAB

REACTIONS (5)
  - Urticaria [Unknown]
  - Malaise [Unknown]
  - Oropharyngeal pain [Unknown]
  - Fatigue [Unknown]
  - Migraine [Unknown]
